FAERS Safety Report 6093109-0 (Version None)
Quarter: 2009Q1

REPORT INFORMATION
  Report Type: 
  Country: None (occurrence: None)
  Receive Date: 20090226
  Receipt Date: 20090218
  Transmission Date: 20090719
  Serious: Yes (Other)
  Sender: FDA-Public Use
  Company Number: JP-JNJFOC-20090201489

PATIENT
  Age: 48 Year
  Sex: Male
  Weight: 70 kg

DRUGS (20)
  1. RISPERDAL [Suspect]
     Indication: DEPRESSION
     Route: 048
  2. RISPERDAL [Suspect]
     Indication: ANXIETY
     Route: 048
  3. RISPERDAL [Suspect]
     Indication: IRRITABILITY
     Route: 048
  4. RISPERDAL [Suspect]
     Indication: INSOMNIA
     Route: 048
  5. ANAFRANIL [Suspect]
     Route: 048
  6. ANAFRANIL [Suspect]
     Route: 048
  7. ANAFRANIL [Suspect]
     Route: 048
  8. ANAFRANIL [Suspect]
     Indication: DEPRESSION
     Route: 048
  9. DORAL [Suspect]
     Route: 048
  10. DORAL [Suspect]
     Route: 048
  11. DORAL [Suspect]
     Route: 048
  12. DORAL [Suspect]
     Indication: DEPRESSION
     Route: 048
  13. LENDORMIN [Concomitant]
     Indication: DEPRESSION
     Route: 048
  14. WYPAX [Concomitant]
     Indication: DEPRESSION
     Route: 048
  15. TENORMIN [Concomitant]
     Indication: HYPERTENSION
     Route: 048
  16. TAKEPRON [Concomitant]
     Indication: REFLUX OESOPHAGITIS
     Route: 048
  17. MAGNESIUM OXIDE [Concomitant]
     Indication: CONSTIPATION
     Route: 048
  18. ALPRAZOLAM [Concomitant]
     Indication: DEPRESSION
     Route: 048
  19. ADETPHOS [Concomitant]
     Indication: SUDDEN HEARING LOSS
     Route: 048
  20. CYANOCOBALAMIN [Concomitant]
     Indication: SUDDEN HEARING LOSS
     Route: 048

REACTIONS (6)
  - OEDEMA [None]
  - OFF LABEL USE [None]
  - PRURITUS [None]
  - RASH [None]
  - VENOUS THROMBOSIS [None]
  - WEIGHT INCREASED [None]
